FAERS Safety Report 4381108-6 (Version None)
Quarter: 2004Q2

REPORT INFORMATION
  Report Type: 
  Country: None (occurrence: None)
  Receive Date: 20040617
  Receipt Date: 20040617
  Transmission Date: 20050107
  Serious: No
  Sender: FDA-Public Use
  Company Number: None

PATIENT

DRUGS (6)
  1. METOCLOPRAMIDE [Suspect]
     Dosage: LIQUID
  2. DOCUSATE SODIUM [Suspect]
     Dosage: LIQUID
  3. GUAIFENESIN [Suspect]
     Dosage: LIQUID
  4. GUAIFENESIN WITH DEXTROMETHORPHAN BROMIDE [Suspect]
     Dosage: LIQUID
  5. FERROUS SULFATE TAB [Suspect]
     Dosage: LIQUID
  6. DIPHENHYDRAMINE HCL [Suspect]
     Dosage: LIQUID

REACTIONS (1)
  - MEDICATION ERROR [None]
